FAERS Safety Report 4872257-4 (Version None)
Quarter: 2005Q4

REPORT INFORMATION
  Report Type: 
  Country: None (occurrence: None)
  Receive Date: 20051201
  Receipt Date: 20050801
  Transmission Date: 20060501
  Serious: No
  Sender: FDA-Public Use
  Company Number: 2005PV000780

PATIENT
  Age: 55 Year
  Sex: Female
  Weight: 83.4619 kg

DRUGS (6)
  1. BYETTA [Suspect]
     Indication: DIABETES MELLITUS NON-INSULIN-DEPENDENT
     Dosage: 5 MCG;BID;SC; 10 MCG;BID;SC
     Route: 058
     Dates: start: 20050609, end: 20050709
  2. BYETTA [Suspect]
     Indication: DIABETES MELLITUS NON-INSULIN-DEPENDENT
     Dosage: 5 MCG;BID;SC; 10 MCG;BID;SC
     Route: 058
     Dates: start: 20050710
  3. AVANDIA [Concomitant]
  4. CRESTOR [Concomitant]
  5. AVANDAMET [Concomitant]
  6. LEVOTHYROXINE SODIUM [Concomitant]

REACTIONS (6)
  - BLOOD GLUCOSE DECREASED [None]
  - DECREASED APPETITE [None]
  - EARLY SATIETY [None]
  - NAUSEA [None]
  - THERAPEUTIC RESPONSE UNEXPECTED [None]
  - WEIGHT DECREASED [None]
